FAERS Safety Report 5947876-4 (Version None)
Quarter: 2008Q4

REPORT INFORMATION
  Report Type: 
  Country: None (occurrence: None)
  Receive Date: 20081107
  Receipt Date: 20081009
  Transmission Date: 20090506
  Serious: Yes (Disabling, Other)
  Sender: FDA-Public Use
  Company Number: GXKR2008NO08986

PATIENT
  Age: 70 Year
  Sex: Male

DRUGS (9)
  1. SIMVASTATIN [Suspect]
     Dosage: ORAL
     Route: 048
  2. ATACAND HCT [Suspect]
     Indication: HYPERTENSION
     Dosage: 16 MG + 12.5 MG/DAY, ORAL
     Route: 048
  3. PLAVIX [Concomitant]
  4. NEXIUM [Concomitant]
  5. CARDURA [Suspect]
  6. ALBYL-E (ACETYLSALICYLIC ACID, MAGNESIUM OXIDE) [Suspect]
  7. AMLODIPINE [Concomitant]
  8. METOPROLOL SUCCINATE [Concomitant]
  9. BUMETANIDE [Suspect]

REACTIONS (2)
  - DRUG HYPERSENSITIVITY [None]
  - INTERSTITIAL LUNG DISEASE [None]
